FAERS Safety Report 7457158-X (Version None)
Quarter: 2011Q2

REPORT INFORMATION
  Report Type: 
  Country: None (occurrence: None)
  Receive Date: 20110502
  Receipt Date: 20110502
  Transmission Date: 20111010
  Serious: Yes (Life-Threatening)
  Sender: FDA-Public Use
  Company Number: None

PATIENT
  Sex: Female
  Weight: 67.1324 kg

DRUGS (1)
  1. CIPROFLOXACIN [Suspect]
     Indication: SINUSITIS
     Dosage: 500 MG EVERY 12 HRS
     Dates: start: 20110402

REACTIONS (10)
  - FALL [None]
  - FEELING ABNORMAL [None]
  - SWOLLEN TONGUE [None]
  - MUSCLE TIGHTNESS [None]
  - PARAESTHESIA [None]
  - TENDON DISORDER [None]
  - FOOT FRACTURE [None]
  - PALPITATIONS [None]
  - HYPOAESTHESIA [None]
  - URTICARIA [None]
